FAERS Safety Report 22199703 (Version 1)
Quarter: 2023Q2

REPORT INFORMATION
  Report Type: Spontaneous
  Country: AE (occurrence: AE)
  Receive Date: 20230412
  Receipt Date: 20230412
  Transmission Date: 20230722
  Serious: Yes (Other)
  Sender: FDA-Public Use
  Company Number: AE-NOVOPROD-1047218

PATIENT
  Age: 48 Year
  Sex: Female

DRUGS (1)
  1. OZEMPIC [Suspect]
     Active Substance: SEMAGLUTIDE
     Indication: Product used for unknown indication
     Dosage: UNK, QW
     Dates: start: 20230330, end: 20230330

REACTIONS (10)
  - Anxiety [Unknown]
  - Dyspnoea [Unknown]
  - Nausea [Unknown]
  - Dyspepsia [Unknown]
  - Dizziness [Unknown]
  - Abdominal distension [Unknown]
  - Vomiting [Unknown]
  - Asthenia [Unknown]
  - Eructation [Unknown]
  - Heart rate increased [Unknown]

NARRATIVE: CASE EVENT DATE: 20230330
